FAERS Safety Report 18290291 (Version 1)
Quarter: 2020Q3

REPORT INFORMATION
  Report Type: Report from Study
  Country: CR (occurrence: CR)
  Receive Date: 20200921
  Receipt Date: 20200921
  Transmission Date: 20201103
  Serious: Yes (Other)
  Sender: FDA-Public Use
  Company Number: NVSC2020CR255409

PATIENT
  Age: 63 Year
  Sex: Female

DRUGS (2)
  1. EXFORGE [Suspect]
     Active Substance: AMLODIPINE BESYLATE\VALSARTAN
     Indication: BLOOD PRESSURE INCREASED
     Dosage: UNK,(5/320MG)
     Route: 065
     Dates: start: 2019
  2. ATENOLOL. [Suspect]
     Active Substance: ATENOLOL
     Indication: PRODUCT USED FOR UNKNOWN INDICATION
     Dosage: UNK
     Route: 065
     Dates: start: 1998

REACTIONS (6)
  - General physical health deterioration [Unknown]
  - Malaise [Unknown]
  - Hypertension [Unknown]
  - Hypotension [Unknown]
  - Loss of consciousness [Unknown]
  - Adrenal cyst [Unknown]
